FAERS Safety Report 7504189-7 (Version None)
Quarter: 2011Q2

REPORT INFORMATION
  Report Type: 
  Country: None (occurrence: None)
  Receive Date: 20110525
  Receipt Date: 20110517
  Transmission Date: 20111010
  Serious: Yes (Life-Threatening, Hospitalization, Congenital Anomaly, Other)
  Sender: FDA-Public Use
  Company Number: NL-ABBOTT-11P-114-0716135-00

PATIENT
  Weight: 69 kg

DRUGS (14)
  1. FOLIC ACID [Concomitant]
     Indication: VITAMIN SUPPLEMENTATION
     Route: 048
     Dates: start: 20060101, end: 20090101
  2. METHOTREXATE [Concomitant]
     Indication: RHEUMATOID ARTHRITIS
     Route: 048
     Dates: start: 20060101, end: 20090101
  3. OMEPRAZOLE [Concomitant]
     Indication: GASTRIC DISORDER
     Route: 048
     Dates: start: 20110315
  4. OMEPRAZOLE [Concomitant]
     Indication: PROPHYLAXIS
  5. LABETALOL [Concomitant]
     Indication: HYPERTENSION
     Route: 048
     Dates: start: 20000801
  6. LOSARTAN POTASSIUM [Concomitant]
     Indication: HYPERTENSION
     Route: 048
     Dates: start: 20000101, end: 20100316
  7. LIPITOR [Concomitant]
     Indication: BLOOD CHOLESTEROL INCREASED
     Route: 048
     Dates: start: 20000801, end: 20110218
  8. CAPTOPRIL [Concomitant]
     Indication: HYPERTENSION
     Route: 048
     Dates: start: 20000801, end: 20110316
  9. HYDRALAZINE DRAGEE [Concomitant]
     Indication: HYPERTENSION
     Route: 048
     Dates: start: 20090801, end: 20110316
  10. LOSARTAN/HYDROCHLOORTHIAZIDE [Concomitant]
     Dosage: DAILY 100/25 MG
     Route: 048
     Dates: start: 20110330
  11. PREDNISOLONE [Concomitant]
     Indication: RHEUMATOID ARTHRITIS
     Dosage: 25 MG VIAL
     Route: 030
     Dates: start: 20110315
  12. ASCAL [Concomitant]
     Indication: ANTICOAGULANT THERAPY
     Route: 048
     Dates: start: 20090101, end: 20110316
  13. LOSARTAN/HYDROCHLOORTHIAZIDE [Concomitant]
     Indication: HYPERTENSION
     Dosage: 100/25 MG DAILY
     Route: 048
     Dates: start: 20110201, end: 20110316
  14. HUMIRA [Suspect]
     Indication: RHEUMATOID ARTHRITIS
     Route: 058
     Dates: start: 20070301, end: 20110224

REACTIONS (12)
  - PRIAPISM [None]
  - PRURITUS [None]
  - FACE OEDEMA [None]
  - SWOLLEN TONGUE [None]
  - ERYTHEMA [None]
  - OEDEMA PERIPHERAL [None]
  - LYMPHADENOPATHY [None]
  - RASH [None]
  - HYPERSENSITIVITY [None]
  - BLOOD PRESSURE INCREASED [None]
  - TONGUE OEDEMA [None]
  - URINARY TRACT INFECTION [None]
